FAERS Safety Report 6998164-9 (Version None)
Quarter: 2010Q3

REPORT INFORMATION
  Report Type: 
  Country: None (occurrence: None)
  Receive Date: 20100920
  Receipt Date: 20090918
  Transmission Date: 20110219
  Serious: No
  Sender: FDA-Public Use
  Company Number: US-ASTRAZENECA-2009SE05456

PATIENT
  Sex: Male
  Weight: 124.7 kg

DRUGS (14)
  1. SEROQUEL [Suspect]
     Indication: ABNORMAL DREAMS
     Route: 048
  2. SEROQUEL [Suspect]
     Indication: IMPULSIVE BEHAVIOUR
     Route: 048
  3. SEROQUEL [Suspect]
     Indication: INTENTIONAL SELF-INJURY
     Route: 048
  4. SEROQUEL [Suspect]
     Route: 048
  5. SEROQUEL [Suspect]
     Route: 048
  6. SEROQUEL [Suspect]
     Route: 048
  7. SEROQUEL [Suspect]
     Route: 048
  8. SEROQUEL [Suspect]
     Route: 048
  9. SEROQUEL [Suspect]
     Route: 048
  10. RISPERDAL [Concomitant]
  11. DESMOPRESSIN ACETATE [Concomitant]
  12. DIVALPROEX SODIUM [Concomitant]
  13. OMEPRAZOLE [Concomitant]
  14. LEVOTHYROXINE [Concomitant]
     Indication: THYROID FUNCTION TEST ABNORMAL

REACTIONS (6)
  - DYSARTHRIA [None]
  - FATIGUE [None]
  - HEADACHE [None]
  - NASAL CONGESTION [None]
  - NAUSEA [None]
  - THYROID THERAPY [None]
